FAERS Safety Report 15658217 (Version 1)
Quarter: 2018Q4

REPORT INFORMATION
  Report Type: Spontaneous
  Country: US (occurrence: US)
  Receive Date: 20181126
  Receipt Date: 20181126
  Transmission Date: 20190205
  Serious: No
  Sender: FDA-Public Use
  Company Number: US-PFIZER INC-2018066178

PATIENT
  Age: 12 Year
  Sex: Male
  Weight: 24 kg

DRUGS (8)
  1. LEVOTHYROXINE. [Concomitant]
     Active Substance: LEVOTHYROXINE
     Indication: HYPOTHYROIDISM
     Dosage: 44 UG, DAILY
  2. HYDROCORTISONE. [Concomitant]
     Active Substance: HYDROCORTISONE
     Dosage: 2.5 MG, IN THE MORNING
  3. HYDROCORTISONE. [Concomitant]
     Active Substance: HYDROCORTISONE
     Dosage: 2.5 MG, IN THE EVENING (9.7 MG/M2/DAY)
  4. LEVOTHYROXINE. [Concomitant]
     Active Substance: LEVOTHYROXINE
     Dosage: 50 MG, UNK
  5. GENOTROPIN [Suspect]
     Active Substance: SOMATROPIN
     Indication: SEPTO-OPTIC DYSPLASIA
     Dosage: UNK, DAILY (1 ML EVERY DAY OR 10 MG, SOMETHING LIKE THAT A DAY)
  6. GENOTROPIN [Suspect]
     Active Substance: SOMATROPIN
     Indication: GROWTH HORMONE DEFICIENCY
     Dosage: 0.7 MG, DAILY (0.29 MG/KG/WEEK)
  7. GENOTROPIN [Suspect]
     Active Substance: SOMATROPIN
     Dosage: 1 MG, DAILY
     Dates: start: 20120726
  8. HYDROCORTISONE. [Concomitant]
     Active Substance: HYDROCORTISONE
     Dosage: 12.5 MG, AT MIDDAY

REACTIONS (5)
  - Product dose omission [Unknown]
  - Device issue [Unknown]
  - Thyroxine free decreased [Unknown]
  - Blood testosterone decreased [Unknown]
  - Blood luteinising hormone decreased [Unknown]

NARRATIVE: CASE EVENT DATE: 20171009
